FAERS Safety Report 19228715 (Version 2)
Quarter: 2023Q2

REPORT INFORMATION
  Report Type: Spontaneous
  Country: US (occurrence: None)
  Receive Date: 20210506
  Receipt Date: 20230420
  Transmission Date: 20230721
  Serious: No
  Sender: FDA-Public Use
  Company Number: US-ROCHE-2757460

PATIENT
  Age: 85 Year
  Sex: Female

DRUGS (2)
  1. ESBRIET [Suspect]
     Active Substance: PIRFENIDONE
     Indication: Product used for unknown indication
     Route: 048
     Dates: start: 201802
  2. ESBRIET [Suspect]
     Active Substance: PIRFENIDONE
     Route: 048
     Dates: start: 20220308

REACTIONS (10)
  - Sunburn [Unknown]
  - Fatigue [Unknown]
  - Hyperaesthesia [Unknown]
  - Decreased appetite [Unknown]
  - Weight increased [Unknown]
  - Mass [Unknown]
  - Pruritus [Unknown]
  - Movement disorder [Unknown]
  - Urine flow decreased [Unknown]
  - Off label use [Unknown]

NARRATIVE: CASE EVENT DATE: 20180901
